FAERS Safety Report 4441200-4 (Version None)
Quarter: 2004Q3

REPORT INFORMATION
  Report Type: 
  Country: None (occurrence: None)
  Receive Date: 20040728
  Receipt Date: 20040420
  Transmission Date: 20050211
  Serious: No
  Sender: FDA-Public Use
  Company Number: US_0404102510

PATIENT
  Age: 46 Year
  Sex: Female
  Weight: 53 kg

DRUGS (3)
  1. STRATTERA [Suspect]
     Indication: ATTENTION DEFICIT/HYPERACTIVITY DISORDER
     Dosage: 40 MG DAY
     Dates: start: 20040101, end: 20040401
  2. VALIUM [Concomitant]
  3. PERCOCET [Concomitant]

REACTIONS (4)
  - DRY MOUTH [None]
  - LIBIDO INCREASED [None]
  - PERIPHERAL COLDNESS [None]
  - SOMNOLENCE [None]
